FAERS Safety Report 22058914 (Version 1)
Quarter: 2023Q1

REPORT INFORMATION
  Report Type: Spontaneous
  Country: JP (occurrence: JP)
  Receive Date: 20230303
  Receipt Date: 20230303
  Transmission Date: 20230418
  Serious: Yes (Death, Hospitalization, Other)
  Sender: FDA-Public Use
  Company Number: JP-GILEAD-2023-0618530

PATIENT
  Age: 75 Year
  Sex: Male

DRUGS (2)
  1. VEKLURY [Suspect]
     Active Substance: REMDESIVIR
     Indication: COVID-19
     Dosage: UNK
     Route: 065
  2. SOTROVIMAB [Concomitant]
     Active Substance: SOTROVIMAB
     Indication: COVID-19
     Dosage: UNK

REACTIONS (4)
  - Sepsis [Fatal]
  - Pneumonia aspiration [Unknown]
  - Loss of consciousness [Unknown]
  - Cytomegalovirus enterocolitis [Unknown]
